FAERS Safety Report 8364935-X (Version None)
Quarter: 2012Q2

REPORT INFORMATION
  Report Type: 
  Country: None (occurrence: None)
  Receive Date: 20120516
  Receipt Date: 20120510
  Transmission Date: 20120825
  Serious: Yes (Hospitalization)
  Sender: FDA-Public Use
  Company Number: US-GLAXOSMITHKLINE-A0730573A

PATIENT
  Age: 58 Year
  Sex: Female
  Weight: 68.2 kg

DRUGS (5)
  1. LOPRESSOR [Concomitant]
  2. EFFEXOR [Concomitant]
  3. AVANDIA [Suspect]
     Indication: TYPE 2 DIABETES MELLITUS
     Dosage: 8MG PER DAY
     Dates: start: 20000101, end: 20070501
  4. GLIPIZIDE [Concomitant]
  5. LISINOPRIL [Concomitant]

REACTIONS (6)
  - ACUTE CORONARY SYNDROME [None]
  - CARDIAC FAILURE CONGESTIVE [None]
  - MYOCARDIAL INFARCTION [None]
  - CARDIAC DISORDER [None]
  - COAGULOPATHY [None]
  - CORONARY ARTERY OCCLUSION [None]
